FAERS Safety Report 14802600 (Version 5)
Quarter: 2020Q3

REPORT INFORMATION
  Report Type: Spontaneous
  Country: BE (occurrence: BE)
  Receive Date: 20180424
  Receipt Date: 20200730
  Transmission Date: 20201102
  Serious: No
  Sender: FDA-Public Use
  Company Number: BE-BAUSCH-BL-2018-010845

PATIENT
  Age: 66 Year
  Sex: Female

DRUGS (10)
  1. CLOZAPINE. [Suspect]
     Active Substance: CLOZAPINE
     Indication: ACCIDENTAL EXPOSURE TO PRODUCT
     Route: 065
  2. OMEPRAZOLE. [Suspect]
     Active Substance: OMEPRAZOLE
     Indication: ACCIDENTAL EXPOSURE TO PRODUCT
     Route: 065
  3. ROPINIROLE. [Suspect]
     Active Substance: ROPINIROLE
     Indication: ACCIDENTAL EXPOSURE TO PRODUCT
     Route: 065
  4. LEVODOPA [Suspect]
     Active Substance: LEVODOPA
     Indication: ACCIDENTAL EXPOSURE TO PRODUCT
     Route: 065
  5. CLOTIAZEPAM [Suspect]
     Active Substance: CLOTIAZEPAM
     Indication: SKIN TEST
     Route: 065
  6. SELOZOK [Suspect]
     Active Substance: METOPROLOL SUCCINATE
     Indication: ACCIDENTAL EXPOSURE TO PRODUCT
     Route: 065
  7. LORAZEPAM. [Suspect]
     Active Substance: LORAZEPAM
     Indication: ACCIDENTAL EXPOSURE TO PRODUCT
     Route: 065
  8. TETRAZEPAM [Suspect]
     Active Substance: TETRAZEPAM
     Indication: ACCIDENTAL EXPOSURE TO PRODUCT
     Route: 065
  9. TRAZODONE HYDROCHLORIDE. [Suspect]
     Active Substance: TRAZODONE HYDROCHLORIDE
     Indication: SKIN TEST
     Route: 065
  10. BROMAZEPAM [Suspect]
     Active Substance: BROMAZEPAM
     Indication: SKIN TEST
     Route: 065

REACTIONS (3)
  - Dermatitis contact [Recovered/Resolved]
  - Eczema eyelids [Recovered/Resolved]
  - Eczema [Unknown]
